FAERS Safety Report 13417562 (Version 1)
Quarter: 2017Q2

REPORT INFORMATION
  Report Type: Spontaneous
  Country: GB (occurrence: GB)
  Receive Date: 20170407
  Receipt Date: 20170407
  Transmission Date: 20170830
  Serious: Yes (Other)
  Sender: FDA-Public Use
  Company Number: GB-MYLANLABS-2017M1021531

PATIENT

DRUGS (1)
  1. ACARBOSE. [Suspect]
     Active Substance: ACARBOSE
     Indication: DUMPING SYNDROME
     Route: 065

REACTIONS (3)
  - Exposure during pregnancy [Recovered/Resolved]
  - Amniotic cavity infection [Unknown]
  - Normal newborn [Recovered/Resolved]
